FAERS Safety Report 20212573 (Version 5)
Quarter: 2022Q2

REPORT INFORMATION
  Report Type: Spontaneous
  Country: IT (occurrence: IT)
  Receive Date: 20211221
  Receipt Date: 20220627
  Transmission Date: 20220721
  Serious: Yes (Life-Threatening, Hospitalization, Other)
  Sender: FDA-Public Use
  Company Number: IT-PHARMALEX-2021001434

PATIENT
  Age: 15 Year
  Sex: Female

DRUGS (7)
  1. TRAMADOL [Suspect]
     Active Substance: TRAMADOL
     Indication: Abdominal pain
     Dosage: UNK, (TRAMADOL INFUSION)
     Route: 041
  2. KETOROLAC [Suspect]
     Active Substance: KETOROLAC TROMETHAMINE
     Indication: Abdominal pain
     Dosage: UNK
     Route: 065
  3. ACETAMINOPHEN [Suspect]
     Active Substance: ACETAMINOPHEN
     Indication: Abdominal pain
     Dosage: UNK
     Route: 065
  4. ALIZAPRIDE [Concomitant]
     Active Substance: ALIZAPRIDE
     Indication: Vomiting
     Dosage: UNK
     Route: 065
  5. ALIZAPRIDE [Concomitant]
     Active Substance: ALIZAPRIDE
     Indication: Abdominal pain
  6. ACETAMINOPHEN [Concomitant]
     Active Substance: ACETAMINOPHEN
     Indication: Abdominal pain
     Dosage: UNK
     Route: 065
  7. KETOROLAC [Concomitant]
     Active Substance: KETOROLAC TROMETHAMINE
     Indication: Abdominal pain
     Dosage: UNK
     Route: 065

REACTIONS (10)
  - Stress cardiomyopathy [Recovered/Resolved]
  - Kounis syndrome [Recovered/Resolved]
  - Acute pulmonary oedema [Recovered/Resolved]
  - Acute coronary syndrome [Recovered/Resolved]
  - Left ventricular dysfunction [Recovered/Resolved]
  - Haemodynamic instability [Recovered/Resolved]
  - Drug ineffective [Unknown]
  - Hypertension [Recovered/Resolved]
  - Rash [Recovered/Resolved]
  - Headache [Recovered/Resolved]
